FAERS Safety Report 15081842 (Version 1)
Quarter: 2018Q2

REPORT INFORMATION
  Report Type: Spontaneous
  Country: US (occurrence: US)
  Receive Date: 20180628
  Receipt Date: 20180628
  Transmission Date: 20180711
  Serious: No
  Sender: FDA-Public Use
  Company Number: US-009507513-1805USA014182

PATIENT
  Age: 71 Year
  Sex: Male

DRUGS (6)
  1. NASONEX [Suspect]
     Active Substance: MOMETASONE FUROATE
     Indication: RHINITIS
  2. NASONEX [Suspect]
     Active Substance: MOMETASONE FUROATE
     Indication: RESTRICTIVE PULMONARY DISEASE
  3. SINGULAIR [Suspect]
     Active Substance: MONTELUKAST SODIUM
     Indication: RHINITIS
     Route: 048
  4. PROVENTIL [Suspect]
     Active Substance: ALBUTEROL
     Indication: RESTRICTIVE PULMONARY DISEASE
  5. PROVENTIL [Suspect]
     Active Substance: ALBUTEROL
     Indication: RHINITIS
  6. SINGULAIR [Suspect]
     Active Substance: MONTELUKAST SODIUM
     Indication: RESTRICTIVE PULMONARY DISEASE

REACTIONS (1)
  - Drug ineffective [Unknown]
